FAERS Safety Report 14305089 (Version 1)
Quarter: 2017Q4

REPORT INFORMATION
  Report Type: Report from Study
  Country: JP (occurrence: JP)
  Receive Date: 20171219
  Receipt Date: 20171219
  Transmission Date: 20180321
  Serious: Yes (Hospitalization, Other)
  Sender: FDA-Public Use
  Company Number: JP-OTSUKA-005356

PATIENT
  Age: 48 Year
  Sex: Male
  Weight: 60.4 kg

DRUGS (47)
  1. ARIPIPRAZOLE. [Suspect]
     Active Substance: ARIPIPRAZOLE
     Dosage: 30 MG, QD
     Route: 048
     Dates: start: 20080906, end: 20081110
  2. TASMOLIN [Concomitant]
     Active Substance: BIPERIDEN
     Indication: PRODUCT USED FOR UNKNOWN INDICATION
     Dosage: 3 MG, QD
     Route: 048
     Dates: start: 20080301, end: 20080825
  3. DEPAKENE-R JPN [Concomitant]
     Dosage: 1200 MG, QD
     Route: 048
     Dates: start: 20081104, end: 20081110
  4. FOLIAMIN [Concomitant]
     Active Substance: FOLIC ACID
     Indication: PRODUCT USED FOR UNKNOWN INDICATION
     Dosage: 5 MG, QD
     Route: 048
     Dates: start: 20090115
  5. HIBERNA [Concomitant]
     Active Substance: PROMETHAZINE HYDROCHLORIDE
     Indication: PRODUCT USED FOR UNKNOWN INDICATION
     Dosage: 25 MG, QD
     Route: 030
     Dates: start: 20090204, end: 20090210
  6. ARIPIPRAZOLE. [Suspect]
     Active Substance: ARIPIPRAZOLE
     Dosage: 6 MG, QD
     Route: 048
     Dates: start: 20081123, end: 20090203
  7. SENNOSIDE [Concomitant]
     Active Substance: SENNOSIDES
     Dosage: 12 MG, QD
     Route: 048
     Dates: start: 20080809
  8. LINTON [Concomitant]
     Active Substance: HALOPERIDOL
     Dosage: 15 MG, QD
     Route: 030
  9. CONTOMIN [Concomitant]
     Active Substance: CHLORPROMAZINE
     Indication: SCHIZOPHRENIA
     Dosage: 400 MG, QD
     Route: 048
     Dates: start: 20070126, end: 20080919
  10. CONTOMIN [Concomitant]
     Active Substance: CHLORPROMAZINE
     Dosage: 300 MG, QD
     Route: 048
     Dates: start: 20080920, end: 20080926
  11. CONTOMIN [Concomitant]
     Active Substance: CHLORPROMAZINE
     Dosage: 600 MG, QD
     Route: 048
     Dates: start: 20081123, end: 20090109
  12. SEROQUEL [Concomitant]
     Active Substance: QUETIAPINE FUMARATE
     Dosage: 200 MG, QD
     Route: 048
     Dates: start: 20080809, end: 20080829
  13. DEPAKENE-R JPN [Concomitant]
     Dosage: 600 MG, QD
     Route: 048
     Dates: start: 20080801, end: 20081024
  14. VALERIN [Concomitant]
     Active Substance: VALPROATE SODIUM
     Dosage: 1200 MG, DAILY DOSE
     Route: 048
     Dates: start: 20090228, end: 20090301
  15. SEROQUEL [Concomitant]
     Active Substance: QUETIAPINE FUMARATE
     Dosage: 400 MG, QD
     Route: 048
     Dates: start: 20080726, end: 20080731
  16. DEPAKENE-R JPN [Concomitant]
     Dosage: 800 MG, QD
     Route: 048
     Dates: start: 20081025, end: 20081031
  17. DEPAKENE-R JPN [Concomitant]
     Dosage: 1000 MG, QD
     Route: 048
     Dates: start: 20081101, end: 20081103
  18. SENNOSIDE [Concomitant]
     Active Substance: SENNOSIDES
     Indication: PRODUCT USED FOR UNKNOWN INDICATION
     Dosage: 24 MG, QD
     Route: 048
     Dates: start: 20080319, end: 20080808
  19. LOSIZOPILON [Concomitant]
     Active Substance: ZOTEPINE
     Dosage: 300 MG, QD
     Route: 048
     Dates: start: 20081111, end: 20081112
  20. VALERIN [Concomitant]
     Active Substance: VALPROATE SODIUM
     Dosage: 1200 MG, DAILY DOSE
     Route: 048
     Dates: start: 20090303, end: 20090316
  21. VALERIN [Concomitant]
     Active Substance: VALPROATE SODIUM
     Dosage: 1200 MG, DAILY DOSE
     Route: 048
     Dates: start: 20090417, end: 20090428
  22. ARIPIPRAZOLE. [Suspect]
     Active Substance: ARIPIPRAZOLE
     Dosage: 24 MG, QD
     Route: 048
     Dates: start: 20080705, end: 20080808
  23. SEROQUEL [Concomitant]
     Active Substance: QUETIAPINE FUMARATE
     Dosage: 300 MG, QD
     Route: 048
     Dates: start: 20080801, end: 20080808
  24. URSO [Concomitant]
     Active Substance: URSODIOL
     Indication: PRODUCT USED FOR UNKNOWN INDICATION
     Dosage: 300 MG, QD
     Route: 048
     Dates: start: 20080216
  25. TASMOLIN [Concomitant]
     Active Substance: BIPERIDEN
     Dosage: 2 MG, QD
     Route: 048
     Dates: start: 20080830, end: 20080926
  26. TASMOLIN [Concomitant]
     Active Substance: BIPERIDEN
     Dosage: 1 MG, QD
     Route: 048
     Dates: start: 20081004, end: 20081103
  27. PIARLE [Concomitant]
     Indication: PRODUCT USED FOR UNKNOWN INDICATION
     Dosage: 60 ML, DAILY DOSE
     Route: 048
     Dates: start: 20080320
  28. LOSIZOPILON [Concomitant]
     Active Substance: ZOTEPINE
     Indication: SCHIZOPHRENIA
     Dosage: 50 MG, QD
     Route: 048
     Dates: start: 20081106, end: 20081110
  29. VALERIN [Concomitant]
     Active Substance: VALPROATE SODIUM
     Indication: SCHIZOPHRENIA
     Dosage: 1200 MG, QD
     Route: 048
     Dates: start: 20081111, end: 20090217
  30. LINTON [Concomitant]
     Active Substance: HALOPERIDOL
     Indication: PRODUCT USED FOR UNKNOWN INDICATION
     Dosage: 10 MG, QD
     Route: 030
     Dates: start: 20090204, end: 20090210
  31. HIBERNA [Concomitant]
     Active Substance: PROMETHAZINE HYDROCHLORIDE
     Dosage: 50 MG, QD
     Route: 030
  32. ARIPIPRAZOLE. [Suspect]
     Active Substance: ARIPIPRAZOLE
     Indication: SCHIZOPHRENIA
     Dosage: 3 MG, QD
     Route: 048
     Dates: start: 20080628, end: 20080704
  33. ARIPIPRAZOLE. [Suspect]
     Active Substance: ARIPIPRAZOLE
     Dosage: 12 MG, QD
     Route: 048
     Dates: start: 20080809, end: 20080822
  34. ARIPIPRAZOLE. [Suspect]
     Active Substance: ARIPIPRAZOLE
     Dosage: 6 MG, QD
     Route: 048
     Dates: start: 20080823, end: 20080905
  35. CONTOMIN [Concomitant]
     Active Substance: CHLORPROMAZINE
     Dosage: 200 MG, QD
     Route: 048
     Dates: start: 20080927, end: 20081003
  36. CONTOMIN [Concomitant]
     Active Substance: CHLORPROMAZINE
     Dosage: 100 MG, QD
     Route: 048
     Dates: start: 20081011, end: 20081024
  37. CONTOMIN [Concomitant]
     Active Substance: CHLORPROMAZINE
     Dosage: 50 MG, QD
     Route: 048
     Dates: start: 20081025, end: 20081031
  38. CONTOMIN [Concomitant]
     Active Substance: CHLORPROMAZINE
     Dosage: 550 MG, QD
     Route: 048
     Dates: start: 20090110
  39. TASMOLIN [Concomitant]
     Active Substance: BIPERIDEN
     Dosage: 1.5 MG, QD
     Route: 048
     Dates: start: 20080927, end: 20081003
  40. DEPAKENE-R JPN [Concomitant]
     Indication: SCHIZOPHRENIA
     Dosage: 300 MG, QD
     Route: 048
     Dates: start: 20080312, end: 20080731
  41. LOSIZOPILON [Concomitant]
     Active Substance: ZOTEPINE
     Dosage: 400 MG, QD
     Route: 048
     Dates: start: 20081113, end: 20081122
  42. HIBERNA [Concomitant]
     Active Substance: PROMETHAZINE HYDROCHLORIDE
     Indication: PRODUCT USED FOR UNKNOWN INDICATION
     Dosage: 50 MG, QD
     Route: 048
     Dates: start: 20081113
  43. VALERIN [Concomitant]
     Active Substance: VALPROATE SODIUM
     Dosage: 1200 MG, DAILY DOSE
     Route: 048
     Dates: start: 20090218, end: 20090227
  44. ARIPIPRAZOLE. [Suspect]
     Active Substance: ARIPIPRAZOLE
     Dosage: 12 MG, QD
     Route: 048
     Dates: start: 20081111, end: 20081122
  45. SEROQUEL [Concomitant]
     Active Substance: QUETIAPINE FUMARATE
     Indication: SCHIZOPHRENIA
     Dosage: 500 MG, QD
     Route: 048
     Dates: start: 20070126, end: 20080725
  46. SEROQUEL [Concomitant]
     Active Substance: QUETIAPINE FUMARATE
     Dosage: 100 MG, QD
     Route: 048
     Dates: start: 20080830, end: 20080912
  47. MAGMITT [Concomitant]
     Active Substance: MAGNESIUM OXIDE
     Indication: PRODUCT USED FOR UNKNOWN INDICATION
     Dosage: 1500 MG, QD
     Route: 048
     Dates: start: 20080305

REACTIONS (10)
  - Mania [Unknown]
  - Hallucination [Recovering/Resolving]
  - Delusion [Recovered/Resolved]
  - Insomnia [Recovered/Resolved]
  - Soliloquy [Unknown]
  - Delusion [Recovering/Resolving]
  - Hallucination [Recovered/Resolved]
  - Agitation [Unknown]
  - Platelet count decreased [Recovered/Resolved]
  - Schizophrenia [Unknown]

NARRATIVE: CASE EVENT DATE: 20081104
